FAERS Safety Report 11872143 (Version 14)
Quarter: 2018Q4

REPORT INFORMATION
  Report Type: Spontaneous
  Country: US (occurrence: US)
  Receive Date: 20151228
  Receipt Date: 20181019
  Transmission Date: 20190204
  Serious: Yes (Death, Hospitalization, Other)
  Sender: FDA-Public Use
  Company Number: US-PFIZER INC-2015464439

PATIENT
  Age: 66 Year
  Sex: Female

DRUGS (5)
  1. METOPROLOL SUCCINATE. [Concomitant]
     Active Substance: METOPROLOL SUCCINATE
     Dosage: UNK
  2. ISOSORBIDE MN [Concomitant]
     Active Substance: ISOSORBIDE MONONITRATE
  3. LOVASTATIN. [Concomitant]
     Active Substance: LOVASTATIN
  4. DEPO-MEDROL [Suspect]
     Active Substance: METHYLPREDNISOLONE ACETATE
     Indication: CHONDROCALCINOSIS PYROPHOSPHATE
     Dosage: 80 MG, UNK (INTO HER LEFT KNEE)
     Dates: start: 20121218, end: 20121218
  5. METOPROLOL SUCCINATE. [Concomitant]
     Active Substance: METOPROLOL SUCCINATE
     Dosage: UNK

REACTIONS (8)
  - Cardiac arrest [Fatal]
  - Cerebrovascular accident [Unknown]
  - Pulmonary congestion [Unknown]
  - Acute kidney injury [Unknown]
  - Pulseless electrical activity [Fatal]
  - Arthritis bacterial [Unknown]
  - Osteomyelitis [Unknown]
  - Pulmonary valve incompetence [Unknown]

NARRATIVE: CASE EVENT DATE: 20121223
